FAERS Safety Report 8587193-X (Version None)
Quarter: 2012Q3

REPORT INFORMATION
  Report Type: 
  Country: None (occurrence: None)
  Receive Date: 20120810
  Receipt Date: 20111007
  Transmission Date: 20120928
  Serious: No
  Sender: FDA-Public Use
  Company Number: US-ASTRAZENECA-2010SE57099

PATIENT
  Age: 71 Year
  Sex: Female
  Weight: 63.5 kg

DRUGS (4)
  1. ZOCOR [Concomitant]
     Indication: BLOOD CHOLESTEROL ABNORMAL
  2. PULMICORT FLEXHALER [Suspect]
     Indication: COUGH
     Dosage: TWO TIMES A DAY
     Route: 055
  3. FELODIPINE [Suspect]
     Indication: HYPERTENSION
     Route: 048
  4. ARIMIDEX [Suspect]
     Indication: BREAST CANCER
     Route: 048

REACTIONS (10)
  - SKIN IRRITATION [None]
  - FEELING HOT [None]
  - DYSGEUSIA [None]
  - DRUG INEFFECTIVE [None]
  - RENAL CYST [None]
  - PARAESTHESIA [None]
  - WEIGHT DECREASED [None]
  - HEADACHE [None]
  - COUGH [None]
  - SOMNOLENCE [None]
